FAERS Safety Report 9834241 (Version 3)
Quarter: 2014Q1

REPORT INFORMATION
  Report Type: Report from Study
  Country: US (occurrence: US)
  Receive Date: 20140122
  Receipt Date: 20140207
  Transmission Date: 20141002
  Serious: Yes (Hospitalization)
  Sender: FDA-Public Use
  Company Number: US-JNJFOC-20140108675

PATIENT
  Age: 62 Year
  Sex: Male
  Weight: 90 kg

DRUGS (15)
  1. IBRUTINIB [Suspect]
     Indication: B-CELL LYMPHOMA
     Route: 048
     Dates: start: 20131112, end: 20140112
  2. DOCUSATE [Concomitant]
     Route: 048
  3. HYDROCORTISONE [Concomitant]
     Route: 048
  4. HYDROCORTISONE [Concomitant]
     Route: 048
  5. LEVOTHYROXINE [Concomitant]
  6. LORAZEPAM [Concomitant]
     Route: 048
  7. LORAZEPAM [Concomitant]
     Route: 048
  8. OCTREOTIDE [Concomitant]
     Route: 030
  9. ONDANSETRON [Concomitant]
     Route: 048
  10. POLYETHYLENE GLYCOL [Concomitant]
     Route: 048
  11. RANITIDINE [Concomitant]
     Route: 048
  12. SERTRALINE [Concomitant]
     Route: 048
  13. TESTOSTERONE [Concomitant]
     Route: 061
  14. ALBUTEROL [Concomitant]
     Route: 055
  15. METFORMIN [Concomitant]
     Route: 048

REACTIONS (3)
  - Hypoxia [Recovered/Resolved with Sequelae]
  - Bronchitis [Recovered/Resolved]
  - Pyrexia [Recovered/Resolved]
